FAERS Safety Report 6925980-1 (Version None)
Quarter: 2010Q3

REPORT INFORMATION
  Report Type: 
  Country: None (occurrence: None)
  Receive Date: 20100810
  Receipt Date: 20100727
  Transmission Date: 20110219
  Serious: Yes (Hospitalization)
  Sender: FDA-Public Use
  Company Number: B0668658A

PATIENT
  Age: 66 Year
  Sex: Female

DRUGS (2)
  1. LAMOTRIGINE [Suspect]
     Dosage: ORAL
     Route: 048
  2. DULOXETINE HYDROCHLORIDE [Suspect]
     Dosage: ORAL
     Route: 048

REACTIONS (4)
  - COLITIS ISCHAEMIC [None]
  - COMA [None]
  - HYPOTENSION [None]
  - PNEUMONIA ASPIRATION [None]
